FAERS Safety Report 6557166-7 (Version None)
Quarter: 2010Q1

REPORT INFORMATION
  Report Type: 
  Country: None (occurrence: None)
  Receive Date: 20100127
  Receipt Date: 20100127
  Transmission Date: 20100710
  Serious: Yes (Hospitalization, Other)
  Sender: FDA-Public Use
  Company Number: None

PATIENT
  Age: 14 Year
  Sex: Male
  Weight: 49.8957 kg

DRUGS (2)
  1. ADDERALL XR 20 [Suspect]
     Indication: DISTRACTIBILITY
     Dosage: 1 X PER DAY PO YEARS
     Route: 048
     Dates: start: 20070101, end: 20100101
  2. ADDERALL XR 20 [Suspect]
     Indication: DISTURBANCE IN ATTENTION
     Dosage: 1 X PER DAY PO YEARS
     Route: 048
     Dates: start: 20070101, end: 20100101

REACTIONS (14)
  - ABNORMAL BEHAVIOUR [None]
  - DEPRESSION [None]
  - DISORIENTATION [None]
  - DISTURBANCE IN ATTENTION [None]
  - FALL [None]
  - FEELING ABNORMAL [None]
  - HEART RATE IRREGULAR [None]
  - IRRITABILITY [None]
  - MUSCLE TIGHTNESS [None]
  - PRODUCT QUALITY ISSUE [None]
  - PRODUCT SUBSTITUTION ISSUE [None]
  - TACHYCARDIA [None]
  - TENSION [None]
  - UNEVALUABLE EVENT [None]
